FAERS Safety Report 6856838-4 (Version None)
Quarter: 2010Q3

REPORT INFORMATION
  Report Type: 
  Country: None (occurrence: None)
  Receive Date: 20100719
  Receipt Date: 20100708
  Transmission Date: 20110219
  Serious: Yes (Hospitalization)
  Sender: FDA-Public Use
  Company Number: US-AMGEN-QUU423407

PATIENT
  Sex: Male

DRUGS (2)
  1. ENBREL [Suspect]
     Indication: PSORIATIC ARTHROPATHY
     Dates: start: 20060501
  2. ENBREL [Suspect]
     Indication: PSORIASIS

REACTIONS (4)
  - HYPERSENSITIVITY [None]
  - RASH MACULAR [None]
  - SLEEP APNOEA SYNDROME [None]
  - THROMBOSIS [None]
